FAERS Safety Report 8179960-1 (Version None)
Quarter: 2012Q1

REPORT INFORMATION
  Report Type: 
  Country: None (occurrence: None)
  Receive Date: 20120302
  Receipt Date: 20120220
  Transmission Date: 20120608
  Serious: Yes (Hospitalization)
  Sender: FDA-Public Use
  Company Number: FR-BRISTOL-MYERS SQUIBB COMPANY-16412603

PATIENT
  Age: 87 Year
  Sex: Female

DRUGS (5)
  1. CLONAZEPAM [Suspect]
  2. COUMADIN [Suspect]
     Indication: PULMONARY EMBOLISM
     Route: 048
     Dates: end: 20111010
  3. COUMADIN [Suspect]
     Indication: DEEP VEIN THROMBOSIS
     Route: 048
     Dates: end: 20111010
  4. PAROXETINE HYDROCHLORIDE [Suspect]
     Dosage: 20MG TAB IS THE STRENGTH. 1DF= 1/2 TAB
     Route: 048
  5. ACETAMINOPHEN [Suspect]
     Indication: PAIN
     Dosage: DOLIPRANE 500MG IS THE STRENGTH

REACTIONS (4)
  - ORTHOSTATIC HYPOTENSION [None]
  - HAEMATOMA [None]
  - FALL [None]
  - SYNCOPE [None]
